FAERS Safety Report 9245196 (Version 1)
Quarter: 2013Q1

REPORT INFORMATION
  Report Type: Spontaneous
  Country: US (occurrence: None)
  Receive Date: 20121130
  Receipt Date: 20121130
  Transmission Date: 20140127
  Serious: Yes (Hospitalization)
  Sender: FDA-Public Use
  Company Number: 339191

PATIENT
  Age: 75 Year
  Sex: Female
  Weight: 65.3 kg

DRUGS (5)
  1. NOVOLOG [Suspect]
     Indication: TYPE 1 DIABETES MELLITUS
     Dosage: 12 U, QD, SC
     Route: 058
     Dates: start: 2008, end: 201105
  2. LANTUS (INSULIN GLARGINE) [Suspect]
     Indication: TYPE 1 DIABETES MELLITUS
     Dosage: 18 U, QPM, SC
     Route: 058
  3. COZAAR (LOSARTAN POTASSIUM) (50 MILLIGRAM, TABLETS) (LOSARTAN POTASSIUM) [Suspect]
  4. METOPROLOL (METOPROLOL) [Suspect]
  5. SPIRONOLACTONE (SPIRONOLACTONE) [Suspect]

REACTIONS (1)
  - Blood glucose fluctuation [None]
